FAERS Safety Report 10762671 (Version 2)
Quarter: 2015Q1

REPORT INFORMATION
  Report Type: Spontaneous
  Country: RU (occurrence: RU)
  Receive Date: 20150204
  Receipt Date: 20150213
  Transmission Date: 20150721
  Serious: Yes (Death)
  Sender: FDA-Public Use
  Company Number: RU-BAYER-2015-011521

PATIENT
  Age: 71 Year
  Sex: Male

DRUGS (3)
  1. ULTRAVIST [Suspect]
     Active Substance: IOPROMIDE
     Indication: ANGIOGRAM
     Dosage: UNK
     Dates: start: 20150126, end: 20150126
  2. ULTRAVIST [Suspect]
     Active Substance: IOPROMIDE
     Indication: ARTERIOSCLEROSIS
  3. ULTRAVIST [Suspect]
     Active Substance: IOPROMIDE
     Indication: CAROTID ARTERY STENOSIS

REACTIONS (3)
  - Anaphylactic reaction [Fatal]
  - Coronary artery insufficiency [Fatal]
  - Acute myocardial infarction [Fatal]

NARRATIVE: CASE EVENT DATE: 20150126
